FAERS Safety Report 15984592 (Version 1)
Quarter: 2019Q1

REPORT INFORMATION
  Report Type: Spontaneous
  Country: US (occurrence: US)
  Receive Date: 20190220
  Receipt Date: 20190220
  Transmission Date: 20190418
  Serious: Yes (Other)
  Sender: FDA-Public Use
  Company Number: US-BAYER-2019-032436

PATIENT
  Sex: Male
  Weight: 104 kg

DRUGS (9)
  1. OXYCODONE [Concomitant]
     Active Substance: OXYCODONE
     Indication: PAIN
     Dosage: UNK
     Dates: start: 2004
  2. INDOMETHACIN COX [Concomitant]
     Indication: NEURALGIA
     Dosage: UNK
     Dates: start: 2014
  3. VITAMIN B2 [RIBOFLAVIN] [Concomitant]
     Indication: DYSPEPSIA
     Dosage: UNK
     Dates: start: 2013, end: 201612
  4. DICYCLOMINE HCL [Concomitant]
     Active Substance: DICYCLOMINE HYDROCHLORIDE
     Dosage: UNK UNK, PRN
  5. VITAMIN B2 [RIBOFLAVIN] [Concomitant]
     Indication: PAIN
  6. BAYER ASPIRIN [Suspect]
     Active Substance: ASPIRIN
     Indication: ANTICOAGULANT THERAPY
     Dosage: UNK
     Dates: start: 2013
  7. MARIJUANA [Concomitant]
     Active Substance: CANNABIS SATIVA SUBSP. INDICA TOP
  8. BAYER ASPIRIN 500 MG [Suspect]
     Active Substance: ASPIRIN
     Dosage: UNK
  9. VITAMIN B2 [RIBOFLAVIN] [Concomitant]
     Indication: GLAUCOMA

REACTIONS (6)
  - Gastrointestinal haemorrhage [Recovered/Resolved]
  - Haematemesis [Recovered/Resolved]
  - Drug screen positive [Unknown]
  - Nausea [None]
  - Abdominal pain upper [None]
  - Weight decreased [None]

NARRATIVE: CASE EVENT DATE: 2014
